FAERS Safety Report 5343991-7 (Version None)
Quarter: 2007Q2

REPORT INFORMATION
  Report Type: 
  Country: None (occurrence: None)
  Receive Date: 20070604
  Receipt Date: 20070523
  Transmission Date: 20071010
  Serious: No
  Sender: FDA-Public Use
  Company Number: FR-AVENTIS-200711760FR

PATIENT
  Sex: Female

DRUGS (2)
  1. ARAVA [Suspect]
     Route: 048
     Dates: start: 20060101, end: 20070523
  2. CORTANCYL [Suspect]
     Route: 048

REACTIONS (3)
  - DRUG EXPOSURE DURING PREGNANCY [None]
  - MEDICATION ERROR [None]
  - NO ADVERSE EFFECT [None]
